FAERS Safety Report 9918911 (Version 1)
Quarter: 2014Q1

REPORT INFORMATION
  Report Type: Spontaneous
  Country: US (occurrence: US)
  Receive Date: 20140224
  Receipt Date: 20140224
  Transmission Date: 20141002
  Serious: No
  Sender: FDA-Public Use
  Company Number: US-PFIZER INC-2014051017

PATIENT
  Age: 43 Year
  Sex: Female
  Weight: 104 kg

DRUGS (2)
  1. CHANTIX [Suspect]
     Indication: SMOKING CESSATION THERAPY
     Dosage: 0.5 MG, DAILY
     Dates: start: 20140214, end: 201402
  2. CHANTIX [Suspect]
     Dosage: UNK
     Dates: start: 201402

REACTIONS (1)
  - Abdominal pain upper [Unknown]
